FAERS Safety Report 14907419 (Version 1)
Quarter: 2018Q2

REPORT INFORMATION
  Report Type: Spontaneous
  Country: US (occurrence: US)
  Receive Date: 20180428
  Receipt Date: 20180428
  Transmission Date: 20180711
  Serious: No
  Sender: FDA-Public Use
  Company Number: None

PATIENT
  Age: 29 Year
  Sex: Female
  Weight: 69.3 kg

DRUGS (3)
  1. DULOXETINE DR 30 MG CAPSULES, MFG SOLCO - GENERIC FOR CYMBALTA 30 MG [Suspect]
     Active Substance: DULOXETINE
     Indication: MAJOR DEPRESSION
     Dosage: ?          QUANTITY:30 CAPSULE(S);?
     Route: 048
     Dates: start: 20180425, end: 20180428
  2. DULOXETINE DR 30 MG CAPSULES, MFG SOLCO - GENERIC FOR CYMBALTA 30 MG [Suspect]
     Active Substance: DULOXETINE
     Indication: GENERALISED ANXIETY DISORDER
     Dosage: ?          QUANTITY:30 CAPSULE(S);?
     Route: 048
     Dates: start: 20180425, end: 20180428
  3. DULOXETINE DR 30 MG CAPSULES, MFG SOLCO - GENERIC FOR CYMBALTA 30 MG [Suspect]
     Active Substance: DULOXETINE
     Indication: FIBROMYALGIA
     Dosage: ?          QUANTITY:30 CAPSULE(S);?
     Route: 048
     Dates: start: 20180425, end: 20180428

REACTIONS (8)
  - Nausea [None]
  - Back pain [None]
  - Insomnia [None]
  - Neck pain [None]
  - Product substitution issue [None]
  - Musculoskeletal stiffness [None]
  - Migraine [None]
  - Pain [None]

NARRATIVE: CASE EVENT DATE: 20180427
